FAERS Safety Report 13441860 (Version 2)
Quarter: 2017Q2

REPORT INFORMATION
  Report Type: Spontaneous
  Country: US (occurrence: US)
  Receive Date: 20170413
  Receipt Date: 20170418
  Transmission Date: 20170830
  Serious: Yes (Hospitalization)
  Sender: FDA-Public Use
  Company Number: US-B.I. PHARMACEUTICALS,INC./RIDGEFIELD-2017-BI-020784

PATIENT
  Sex: Female

DRUGS (1)
  1. TELMISARTAN. [Suspect]
     Active Substance: TELMISARTAN
     Indication: ROUTINE HEALTH MAINTENANCE
     Dosage: 1 TABLET DAILY;  FORM STRENGTH: 80MG; FORMULATION: TABLET? ADMINISTRATION CORRECT? YES ?ACTION(S) TA
     Route: 048

REACTIONS (5)
  - Atrial fibrillation [Recovered/Resolved]
  - Alopecia [Recovered/Resolved with Sequelae]
  - Trichorrhexis [Recovered/Resolved]
  - Extrasystoles [Recovered/Resolved]
  - Memory impairment [Recovered/Resolved]
